FAERS Safety Report 26150930 (Version 1)
Quarter: 2025Q4

REPORT INFORMATION
  Report Type: Spontaneous
  Country: CN (occurrence: CN)
  Receive Date: 20251212
  Receipt Date: 20251212
  Transmission Date: 20260117
  Serious: No
  Sender: ANI
  Company Number: None

PATIENT
  Age: 60 Year
  Sex: Male
  Weight: 65 kg

DRUGS (2)
  1. FLUVOXAMINE MALEATE [Suspect]
     Active Substance: FLUVOXAMINE MALEATE
     Indication: Depressed mood
     Route: 048
     Dates: start: 20251008, end: 20251119
  2. FLUVOXAMINE MALEATE [Suspect]
     Active Substance: FLUVOXAMINE MALEATE
     Indication: Depressed mood
     Dosage: DOSE DECREASED
     Route: 048
     Dates: start: 20251008, end: 20251119

REACTIONS (1)
  - Somnolence [Recovered/Resolved]
